FAERS Safety Report 25621459 (Version 2)
Quarter: 2025Q4

REPORT INFORMATION
  Report Type: Spontaneous
  Country: EU (occurrence: EU)
  Receive Date: 20250730
  Receipt Date: 20251128
  Transmission Date: 20260118
  Serious: Yes (Other)
  Sender: RANBAXY
  Company Number: EU-SUN PHARMACEUTICAL INDUSTRIES LTD-2025RR-519182

PATIENT
  Age: 48 Year
  Sex: Female

DRUGS (5)
  1. GEMCITABINE [Suspect]
     Active Substance: GEMCITABINE
     Indication: Disease progression
     Dosage: UNK
     Route: 065
     Dates: start: 2024
  2. PALBOCICLIB [Suspect]
     Active Substance: PALBOCICLIB
     Indication: Bone lesion
     Dosage: UNK
     Route: 065
     Dates: start: 2020
  3. FULVESTRANT [Suspect]
     Active Substance: FULVESTRANT
     Indication: Bone lesion
     Dosage: UNK
     Route: 065
     Dates: start: 2022
  4. CAPECITABINE [Suspect]
     Active Substance: CAPECITABINE
     Indication: Disease progression
     Dosage: UNK
     Route: 065
     Dates: start: 2022
  5. CARBOPLATIN [Suspect]
     Active Substance: CARBOPLATIN
     Indication: Disease progression
     Dosage: UNK
     Route: 065
     Dates: start: 2024

REACTIONS (1)
  - Disease progression [Not Recovered/Not Resolved]
